FAERS Safety Report 6730614-5 (Version None)
Quarter: 2010Q2

REPORT INFORMATION
  Report Type: 
  Country: None (occurrence: None)
  Receive Date: 20100518
  Receipt Date: 20100505
  Transmission Date: 20101027
  Serious: Yes (Other)
  Sender: FDA-Public Use
  Company Number: US-BAUSCH-2010BL000467

PATIENT
  Age: 74 Year
  Sex: Male

DRUGS (34)
  1. BESIVANCE [Suspect]
     Indication: ANTIBIOTIC PROPHYLAXIS
     Route: 047
     Dates: start: 20100110, end: 20100118
  2. BESIVANCE [Suspect]
     Indication: OFF LABEL USE
     Route: 047
     Dates: start: 20100110, end: 20100118
  3. BESIVANCE [Suspect]
     Indication: KERATITIS BACTERIAL
     Route: 047
     Dates: start: 20100110, end: 20100118
  4. BESIVANCE [Suspect]
     Route: 047
     Dates: start: 20100110, end: 20100118
  5. BESIVANCE [Suspect]
     Route: 047
     Dates: start: 20100110, end: 20100118
  6. BESIVANCE [Suspect]
     Route: 047
     Dates: start: 20100110, end: 20100118
  7. BESIVANCE [Suspect]
     Route: 047
     Dates: start: 20100110, end: 20100118
  8. BESIVANCE [Suspect]
     Route: 047
     Dates: start: 20100110, end: 20100118
  9. BESIVANCE [Suspect]
     Route: 047
     Dates: start: 20100110, end: 20100118
  10. BESIVANCE [Suspect]
     Route: 047
     Dates: start: 20100110, end: 20100118
  11. BESIVANCE [Suspect]
     Route: 047
     Dates: start: 20100110, end: 20100118
  12. BESIVANCE [Suspect]
     Route: 047
     Dates: start: 20100110, end: 20100118
  13. BESIVANCE [Suspect]
     Route: 047
     Dates: start: 20100222, end: 20100225
  14. BESIVANCE [Suspect]
     Route: 047
     Dates: start: 20100222, end: 20100225
  15. BESIVANCE [Suspect]
     Route: 047
     Dates: start: 20100222, end: 20100225
  16. BESIVANCE [Suspect]
     Route: 047
     Dates: start: 20100225, end: 20100302
  17. BESIVANCE [Suspect]
     Route: 047
     Dates: start: 20100225, end: 20100302
  18. BESIVANCE [Suspect]
     Route: 047
     Dates: start: 20100225, end: 20100302
  19. BESIVANCE [Suspect]
     Route: 047
     Dates: start: 20100302
  20. BESIVANCE [Suspect]
     Route: 047
     Dates: start: 20100302
  21. BESIVANCE [Suspect]
     Route: 047
     Dates: start: 20100302
  22. DICLOFENAC SODIUM [Suspect]
     Indication: POST PROCEDURAL COMPLICATION
     Route: 047
     Dates: start: 20100110, end: 20100118
  23. DICLOFENAC SODIUM [Suspect]
     Route: 047
     Dates: start: 20100119, end: 20100121
  24. LOTEMAX [Suspect]
     Indication: POST PROCEDURAL COMPLICATION
     Route: 047
     Dates: start: 20100112, end: 20100118
  25. LOTEMAX [Suspect]
     Route: 047
     Dates: start: 20100112, end: 20100118
  26. LOTEMAX [Suspect]
     Route: 047
     Dates: start: 20100119, end: 20100121
  27. COMBIGAN [Suspect]
     Indication: INTRAOCULAR PRESSURE INCREASED
     Route: 047
     Dates: start: 20100113, end: 20100115
  28. NORVASC [Concomitant]
     Indication: HYPERTENSION
  29. ASPIRIN [Concomitant]
     Indication: CARDIAC DISORDER
  30. PLAVIX [Concomitant]
     Indication: CARDIAC DISORDER
  31. ZOCOR [Concomitant]
     Indication: BLOOD CHOLESTEROL INCREASED
  32. METOPROLOL TARTRATE [Concomitant]
     Indication: HYPERTENSION
  33. LASIX [Concomitant]
     Indication: HYPERTENSION
  34. PRINIVIL [Concomitant]
     Indication: HYPERTENSION

REACTIONS (7)
  - CORNEAL EPITHELIUM DEFECT [None]
  - CORNEAL PIGMENTATION [None]
  - INCORRECT DRUG ADMINISTRATION DURATION [None]
  - INTRAOCULAR PRESSURE INCREASED [None]
  - KERATITIS BACTERIAL [None]
  - MYDRIASIS [None]
  - TOXIC ANTERIOR SEGMENT SYNDROME [None]
